FAERS Safety Report 12740042 (Version 1)
Quarter: 2016Q3

REPORT INFORMATION
  Report Type: Spontaneous
  Country: US (occurrence: US)
  Receive Date: 20160913
  Receipt Date: 20160913
  Transmission Date: 20161109
  Serious: No
  Sender: FDA-Public Use
  Company Number: US-TAKEDA-2016MPI007896

PATIENT
  Age: 81 Year
  Sex: Female
  Weight: 73.47 kg

DRUGS (1)
  1. NINLARO [Suspect]
     Active Substance: IXAZOMIB
     Indication: PLASMA CELL MYELOMA
     Dosage: 4 MG, UNK
     Route: 048
     Dates: start: 20160822

REACTIONS (6)
  - Headache [Unknown]
  - Diarrhoea [Unknown]
  - Decreased appetite [Unknown]
  - Nausea [Unknown]
  - Dehydration [Unknown]
  - Poor quality sleep [Unknown]

NARRATIVE: CASE EVENT DATE: 20160908
